FAERS Safety Report 7275127-X (Version None)
Quarter: 2011Q1

REPORT INFORMATION
  Report Type: 
  Country: None (occurrence: None)
  Receive Date: 20110204
  Receipt Date: 20110124
  Transmission Date: 20110831
  Serious: Yes (Hospitalization)
  Sender: FDA-Public Use
  Company Number: PHFR2010GB06152

PATIENT
  Sex: Male

DRUGS (5)
  1. CITALOPRAM HYDROBROMIDE [Concomitant]
     Indication: DEPRESSED MOOD
     Dosage: 60 MG, UNK
     Route: 048
     Dates: start: 20090123
  2. VALPROATE SODIUM [Concomitant]
     Indication: MOOD SWINGS
     Dosage: 400 MG, BID
     Route: 048
     Dates: start: 20071001
  3. CLOZARIL [Suspect]
     Indication: SCHIZOPHRENIA
     Dosage: UNK MG, UNK
     Route: 048
     Dates: start: 20080511
  4. CLOZARIL [Suspect]
     Dosage: 400 MG, UNK
     Route: 048
     Dates: start: 20080601
  5. HYOSCINE HBR HYT [Concomitant]
     Indication: SALIVARY HYPERSECRETION
     Dosage: 600 MG, UNK
     Route: 048
     Dates: start: 20080801

REACTIONS (5)
  - INFLUENZA LIKE ILLNESS [None]
  - BODY TEMPERATURE INCREASED [None]
  - CHEST DISCOMFORT [None]
  - VIRAL INFECTION [None]
  - PNEUMONIA [None]
